FAERS Safety Report 7216859-9 (Version None)
Quarter: 2011Q1

REPORT INFORMATION
  Report Type: 
  Country: None (occurrence: None)
  Receive Date: 20110104
  Receipt Date: 20110104
  Transmission Date: 20110831
  Serious: No
  Sender: FDA-Public Use
  Company Number: None

PATIENT
  Age: 66 Year
  Sex: Male
  Weight: 83.9154 kg

DRUGS (1)
  1. LEVAQUIN [Suspect]
     Indication: PREOPERATIVE CARE
     Dosage: 750 DAILY PO
     Route: 048
     Dates: start: 20100706, end: 20100709

REACTIONS (1)
  - ARTHRALGIA [None]
